FAERS Safety Report 18786349 (Version 1)
Quarter: 2021Q1

REPORT INFORMATION
  Report Type: Other
  Country: CA (occurrence: CA)
  Receive Date: 20210126
  Receipt Date: 20210126
  Transmission Date: 20210419
  Serious: Yes (Life-Threatening)
  Sender: FDA-Public Use
  Company Number: CA-CELLTRION INC.-2021CA000776

PATIENT

DRUGS (33)
  1. BUSULFAN. [Suspect]
     Active Substance: BUSULFAN
     Dosage: 90 MG
     Route: 042
  2. ACETAMINOPHEN. [Concomitant]
     Active Substance: ACETAMINOPHEN
  3. CALCIUM;ERGOCALCIFEROL [Concomitant]
  4. DEXAMETHASONE. [Concomitant]
     Active Substance: DEXAMETHASONE
     Route: 065
  5. FUROSEMIDE. [Concomitant]
     Active Substance: FUROSEMIDE
  6. BETAMETHASONE. [Concomitant]
     Active Substance: BETAMETHASONE
  7. METOCLOPRAMIDE. [Concomitant]
     Active Substance: METOCLOPRAMIDE
  8. BUSULFAN. [Suspect]
     Active Substance: BUSULFAN
     Indication: ACUTE LYMPHOCYTIC LEUKAEMIA
     Dosage: 77 MG
     Route: 042
  9. FLUDARABINE [Suspect]
     Active Substance: FLUDARABINE PHOSPHATE
     Indication: ACUTE LYMPHOCYTIC LEUKAEMIA
     Dosage: 20 MG
     Route: 042
  10. CEFTAZIDIME. [Concomitant]
     Active Substance: CEFTAZIDIME
  11. DIPHENHYDRAMINE. [Concomitant]
     Active Substance: DIPHENHYDRAMINE
  12. EPINEPHRINE. [Concomitant]
     Active Substance: EPINEPHRINE
  13. THIOTEPA. [Suspect]
     Active Substance: THIOTEPA
     Indication: ACUTE LYMPHOCYTIC LEUKAEMIA
     Dosage: 80 MG
     Route: 042
  14. ALTEPLASE. [Concomitant]
     Active Substance: ALTEPLASE
  15. CICLOSPORIN [Concomitant]
     Active Substance: CYCLOSPORINE
  16. MORPHINE SULFATE. [Concomitant]
     Active Substance: MORPHINE SULFATE
  17. RITUXIMAB (UNKNOWN) [Suspect]
     Active Substance: RITUXIMAB
     Indication: ACUTE LYMPHOCYTIC LEUKAEMIA
     Dosage: 250 MG
     Route: 042
  18. FLUCONAZOLE. [Concomitant]
     Active Substance: FLUCONAZOLE
  19. METHOTREXATE. [Suspect]
     Active Substance: METHOTREXATE
     Indication: ACUTE LYMPHOCYTIC LEUKAEMIA
     Dosage: 3.4 MG
     Route: 042
  20. ONDANSETRON [Concomitant]
     Active Substance: ONDANSETRON
  21. RITUXIMAB (UNKNOWN) [Suspect]
     Active Substance: RITUXIMAB
     Dosage: 255 MG
     Route: 042
  22. BUSULFAN. [Suspect]
     Active Substance: BUSULFAN
     Dosage: 77 MG
     Route: 042
  23. FAMCICLOVIR. [Concomitant]
     Active Substance: FAMCICLOVIR
     Dosage: UNK
  24. HEPARIN CALCIUM [Concomitant]
     Active Substance: HEPARIN CALCIUM
  25. LEVETIRACETAM. [Concomitant]
     Active Substance: LEVETIRACETAM
  26. MAGNESIUM [Concomitant]
     Active Substance: MAGNESIUM
  27. BUSULFAN. [Suspect]
     Active Substance: BUSULFAN
     Indication: ACUTE LYMPHOCYTIC LEUKAEMIA
     Dosage: 70 MG
     Route: 042
  28. AMLODIPINE [Concomitant]
     Active Substance: AMLODIPINE BESYLATE
  29. CHLORHEXIDINE [Concomitant]
     Active Substance: CHLORHEXIDINE
  30. CLOTRIMAZOLE. [Concomitant]
     Active Substance: CLOTRIMAZOLE
  31. DIMENHYDRINATE. [Concomitant]
     Active Substance: DIMENHYDRINATE
  32. LORAZEPAM. [Concomitant]
     Active Substance: LORAZEPAM
  33. NIFEDIPINE. [Concomitant]
     Active Substance: NIFEDIPINE
     Route: 065

REACTIONS (4)
  - Off label use [Unknown]
  - Epstein-Barr virus infection [Unknown]
  - Aplastic anaemia [Unknown]
  - Bacteraemia [Unknown]
